FAERS Safety Report 12958981 (Version 1)
Quarter: 2016Q4

REPORT INFORMATION
  Report Type: Spontaneous
  Country: US (occurrence: US)
  Receive Date: 20161117
  Receipt Date: 20161117
  Transmission Date: 20170207
  Serious: Yes (Hospitalization)
  Sender: FDA-Public Use
  Company Number: None

PATIENT
  Age: 89 Year
  Sex: Female

DRUGS (13)
  1. EZETIMIBE. [Concomitant]
     Active Substance: EZETIMIBE
  2. MULTIVITAMIN [Concomitant]
     Active Substance: VITAMINS
  3. SEVELAMER [Concomitant]
     Active Substance: SEVELAMER
  4. WARFARIN [Suspect]
     Active Substance: WARFARIN
     Indication: ATRIAL FIBRILLATION
     Route: 048
  5. NITROGLYCERIN. [Concomitant]
     Active Substance: NITROGLYCERIN
  6. ISOSORBIDE MONONITRATE. [Concomitant]
     Active Substance: ISOSORBIDE MONONITRATE
  7. METOPROLOL. [Concomitant]
     Active Substance: METOPROLOL
  8. ATORVASTATIN [Concomitant]
     Active Substance: ATORVASTATIN
  9. FOLIC ACID. [Concomitant]
     Active Substance: FOLIC ACID
  10. ASPIRIN. [Concomitant]
     Active Substance: ASPIRIN
  11. LORATADINE. [Concomitant]
     Active Substance: LORATADINE
  12. WARFARIN [Concomitant]
     Active Substance: WARFARIN
  13. CINACALCET [Concomitant]
     Active Substance: CINACALCET

REACTIONS (4)
  - Gastrointestinal haemorrhage [None]
  - International normalised ratio increased [None]
  - Hypophagia [None]
  - Dizziness [None]

NARRATIVE: CASE EVENT DATE: 20160909
